FAERS Safety Report 7131491-3 (Version None)
Quarter: 2010Q4

REPORT INFORMATION
  Report Type: 
  Country: None (occurrence: None)
  Receive Date: 20101201
  Receipt Date: 20101130
  Transmission Date: 20110411
  Serious: Yes (Death, Life-Threatening, Hospitalization, Other)
  Sender: FDA-Public Use
  Company Number: JP-PFIZER INC-2008069639

PATIENT
  Age: 61 Year
  Sex: Male
  Weight: 66 kg

DRUGS (8)
  1. SUNITINIB MALATE [Suspect]
     Indication: RENAL CELL CARCINOMA
     Dosage: 50 MG, 1X/DAY
     Route: 048
     Dates: start: 20080725, end: 20080815
  2. MOBIC [Concomitant]
     Route: 048
     Dates: end: 20080815
  3. ALOSITOL [Concomitant]
     Route: 048
     Dates: start: 20080731, end: 20080815
  4. GASLON [Concomitant]
     Route: 048
     Dates: start: 20080725, end: 20080804
  5. SELBEX [Concomitant]
     Route: 048
     Dates: start: 20080730, end: 20080815
  6. MICARDIS [Concomitant]
     Route: 048
     Dates: start: 20080726, end: 20080815
  7. MAGNESIUM OXIDE [Concomitant]
     Route: 048
     Dates: start: 20080726
  8. PENTAZOCINE LACTATE [Concomitant]
     Indication: PAIN
     Dosage: 15 MG
     Route: 030
     Dates: start: 20080813

REACTIONS (5)
  - DISSEMINATED INTRAVASCULAR COAGULATION [None]
  - IMPAIRED HEALING [None]
  - INTESTINAL PERFORATION [None]
  - PERITONITIS [None]
  - PLATELET COUNT DECREASED [None]
